FAERS Safety Report 5931921-6 (Version None)
Quarter: 2008Q4

REPORT INFORMATION
  Report Type: 
  Country: None (occurrence: None)
  Receive Date: 20081027
  Receipt Date: 20081015
  Transmission Date: 20090506
  Serious: Yes (Other)
  Sender: FDA-Public Use
  Company Number: FR-PFIZER INC-2008088149

PATIENT
  Sex: Female

DRUGS (3)
  1. CYTOTEC [Suspect]
     Indication: ABORTION INDUCED
     Route: 067
     Dates: start: 20080821, end: 20080821
  2. MIFEGYNE [Suspect]
     Indication: ABORTION INDUCED
     Route: 048
     Dates: start: 20080819, end: 20080819
  3. TRIPHASIL-21 [Concomitant]
     Dates: start: 20080821, end: 20080910

REACTIONS (4)
  - DRUG INEFFECTIVE FOR UNAPPROVED INDICATION [None]
  - INDUCED ABORTION FAILED [None]
  - MEDICATION ERROR [None]
  - OFF LABEL USE [None]
